FAERS Safety Report 9290117 (Version 3)
Quarter: 2013Q2

REPORT INFORMATION
  Report Type: Spontaneous
  Country: TN (occurrence: TN)
  Receive Date: 20130515
  Receipt Date: 20130620
  Transmission Date: 20140414
  Serious: Yes (Other)
  Sender: FDA-Public Use
  Company Number: PHHY2013TN047996

PATIENT
  Age: 45 Year
  Sex: Female

DRUGS (5)
  1. GILENYA [Suspect]
     Indication: SECONDARY PROGRESSIVE MULTIPLE SCLEROSIS
     Dosage: 1 DF, QD
     Route: 048
     Dates: start: 20130110, end: 20130429
  2. GILENYA [Suspect]
     Indication: OFF LABEL USE
  3. VITAMINS NOS [Concomitant]
  4. ANTIBIOTICS [Concomitant]
     Indication: URINARY TRACT INFECTION
  5. ANTIDEPRESSANTS [Concomitant]

REACTIONS (1)
  - Multiple sclerosis relapse [Recovering/Resolving]
